FAERS Safety Report 15865253 (Version 3)
Quarter: 2019Q2

REPORT INFORMATION
  Report Type: Spontaneous
  Country: JP (occurrence: JP)
  Receive Date: 20190124
  Receipt Date: 20190530
  Transmission Date: 20190711
  Serious: Yes (Other)
  Sender: FDA-Public Use
  Company Number: JP-UCBSA-2019003144

PATIENT
  Age: 80 Year
  Sex: Male

DRUGS (5)
  1. XYZAL [Suspect]
     Active Substance: LEVOCETIRIZINE DIHYDROCHLORIDE
     Indication: PRURITUS
     Dosage: 5 MG, QD
     Route: 048
     Dates: start: 20190112, end: 20190115
  2. ANTEBATE [Concomitant]
     Active Substance: BETAMETHASONE DIPROPIONATE
     Indication: ECZEMA ASTEATOTIC
     Dosage: UNK
     Dates: start: 20190112
  3. WHITE SOFT PARAFFIN [Concomitant]
     Active Substance: PARAFFIN
     Indication: ECZEMA ASTEATOTIC
     Dosage: UNK
     Dates: start: 20190112
  4. XYZAL [Suspect]
     Active Substance: LEVOCETIRIZINE DIHYDROCHLORIDE
     Indication: ECZEMA ASTEATOTIC
     Dosage: 15 MG, UNK
     Route: 048
  5. XYZAL [Suspect]
     Active Substance: LEVOCETIRIZINE DIHYDROCHLORIDE
     Indication: OFF LABEL USE

REACTIONS (6)
  - Prosopagnosia [Recovered/Resolved]
  - Nocturia [Unknown]
  - Cognitive disorder [Recovered/Resolved]
  - Hallucination [Recovered/Resolved]
  - Off label use [Unknown]
  - Dementia [Recovered/Resolved]

NARRATIVE: CASE EVENT DATE: 20190112
